FAERS Safety Report 18136585 (Version 3)
Quarter: 2020Q3

REPORT INFORMATION
  Report Type: Report from Study
  Country: US (occurrence: US)
  Receive Date: 20200811
  Receipt Date: 20200910
  Transmission Date: 20201103
  Serious: Yes (Death, Hospitalization)
  Sender: FDA-Public Use
  Company Number: US-EXELIXIS-CABO-20031496

PATIENT
  Age: 79 Year
  Sex: Male

DRUGS (1)
  1. CABOMETYX [Suspect]
     Active Substance: CABOZANTINIB S-MALATE
     Indication: RENAL CANCER
     Dosage: 40 MG, QD
     Dates: start: 20200627, end: 20200730

REACTIONS (4)
  - Lethargy [Unknown]
  - Death [Fatal]
  - Arthralgia [Unknown]
  - Diverticulitis [Unknown]

NARRATIVE: CASE EVENT DATE: 20200730
